FAERS Safety Report 25012557 (Version 1)
Quarter: 2025Q1

REPORT INFORMATION
  Report Type: Spontaneous
  Country: US (occurrence: US)
  Receive Date: 20250226
  Receipt Date: 20250226
  Transmission Date: 20250409
  Serious: Yes (Other)
  Sender: MANKIND PHARMA
  Company Number: US-MankindUS-000332

PATIENT
  Age: 15 Year
  Sex: Male

DRUGS (1)
  1. ATROPINE SULFATE [Suspect]
     Active Substance: ATROPINE SULFATE
     Indication: Myopia
     Dosage: INCREASED TO 0.05%, A YEAR AFTER THAT TO 0.1%, AND FINALLY TO 0.2% THE FOLLOWING YEAR

REACTIONS (1)
  - Strabismus [Recovered/Resolved]
